FAERS Safety Report 20616981 (Version 2)
Quarter: 2022Q4

REPORT INFORMATION
  Report Type: Spontaneous
  Country: US (occurrence: US)
  Receive Date: 20220321
  Receipt Date: 20221031
  Transmission Date: 20230113
  Serious: No
  Sender: FDA-Public Use
  Company Number: US-PFIZER INC-202200300497

PATIENT
  Age: 48 Year
  Sex: Female

DRUGS (1)
  1. XELJANZ XR [Suspect]
     Active Substance: TOFACITINIB CITRATE
     Dosage: 11 MG, DAILY
     Route: 048
     Dates: start: 202011

REACTIONS (4)
  - Drug ineffective [Not Recovered/Not Resolved]
  - Musculoskeletal stiffness [Unknown]
  - Sensitivity to weather change [Unknown]
  - Pain [Not Recovered/Not Resolved]
